FAERS Safety Report 7036911-0 (Version None)
Quarter: 2010Q4

REPORT INFORMATION
  Report Type: 
  Country: None (occurrence: None)
  Receive Date: 20101011
  Receipt Date: 20101005
  Transmission Date: 20110411
  Serious: Yes (Other)
  Sender: FDA-Public Use
  Company Number: FR-BAYER-201040091GPV

PATIENT
  Age: 84 Year
  Sex: Female

DRUGS (3)
  1. FLUDARABINE [Suspect]
     Indication: NON-HODGKIN'S LYMPHOMA
     Route: 065
  2. RITUXIMAB [Suspect]
     Indication: NON-HODGKIN'S LYMPHOMA
  3. CYCLOPHOSPHAMIDE [Suspect]
     Indication: NON-HODGKIN'S LYMPHOMA

REACTIONS (7)
  - ASTHENIA [None]
  - BACTERAEMIA [None]
  - DECREASED APPETITE [None]
  - HISTIOCYTOSIS HAEMATOPHAGIC [None]
  - HYPERHIDROSIS [None]
  - PANCYTOPENIA [None]
  - PYREXIA [None]
